FAERS Safety Report 7296643-0 (Version None)
Quarter: 2011Q1

REPORT INFORMATION
  Report Type: 
  Country: None (occurrence: None)
  Receive Date: 20110216
  Receipt Date: 20110211
  Transmission Date: 20110831
  Serious: Yes (Death, Other)
  Sender: FDA-Public Use
  Company Number: PHHY2011US11575

PATIENT

DRUGS (4)
  1. TRAZODONE [Concomitant]
  2. ILOPERIDONE [Suspect]
  3. CLOZARIL [Suspect]
     Dosage: 100 MG, ONE IN THE MORNING AND TWO AT NIGHT
  4. PLAVIX [Concomitant]

REACTIONS (3)
  - ROAD TRAFFIC ACCIDENT [None]
  - BLOOD COUNT ABNORMAL [None]
  - PSYCHOTIC DISORDER [None]
